FAERS Safety Report 8336705-X (Version None)
Quarter: 2012Q2

REPORT INFORMATION
  Report Type: 
  Country: None (occurrence: None)
  Receive Date: 20120504
  Receipt Date: 20120427
  Transmission Date: 20120825
  Serious: Yes (Other)
  Sender: FDA-Public Use
  Company Number: US-BAYER-2012-016312

PATIENT
  Age: 66 Year
  Sex: Male

DRUGS (6)
  1. NEXAVAR [Suspect]
     Indication: HEPATIC NEOPLASM MALIGNANT
     Dosage: 200 MG, BID
     Dates: start: 20120204
  2. ANTIHYPERTENSIVES [Concomitant]
     Indication: HYPERTENSION
  3. NEXAVAR [Suspect]
     Dosage: 400 MG, BID
     Route: 048
     Dates: start: 20120201, end: 20120201
  4. NEXAVAR [Suspect]
     Dosage: 400 MG, BID
     Route: 048
  5. DIOVAN HCT [Concomitant]
     Indication: BLOOD PRESSURE MANAGEMENT
  6. NEXIUM [Concomitant]
     Indication: GASTROOESOPHAGEAL REFLUX DISEASE
     Dosage: UNK

REACTIONS (10)
  - PAIN IN EXTREMITY [None]
  - ABDOMINAL PAIN UPPER [None]
  - FLATULENCE [None]
  - UNEVALUABLE EVENT [None]
  - PAIN [None]
  - ABDOMINAL DISTENSION [None]
  - BLOOD PRESSURE INCREASED [None]
  - INSOMNIA [None]
  - SKIN EXFOLIATION [None]
  - APHAGIA [None]
